FAERS Safety Report 10417454 (Version 1)
Quarter: 2014Q3

REPORT INFORMATION
  Report Type: Spontaneous
  Country: US (occurrence: US)
  Receive Date: 20140829
  Receipt Date: 20140829
  Transmission Date: 20150326
  Serious: Yes (Other)
  Sender: FDA-Public Use
  Company Number: US-MERCK-1408USA013620

PATIENT
  Age: 13 Year
  Sex: Female

DRUGS (3)
  1. VORINOSTAT [Suspect]
     Active Substance: VORINOSTAT
     Indication: METASTATIC NEOPLASM
     Dosage: 180 MG/M2, QD, ON DAYS I THROUGH 5 AND ON DAYS 8 THROUGH 12 FROM SECOND CYCLE ONWARD
     Route: 048
  2. PACLITAXEL. [Suspect]
     Active Substance: PACLITAXEL
     Indication: METASTATIC NEOPLASM
     Dosage: 250 MG/M2, ON DAY 1 SINCE CYCLE 1
  3. CISPLATIN. [Suspect]
     Active Substance: CISPLATIN
     Indication: METASTATIC NEOPLASM
     Dosage: 50 MG/M2, Q3W, ON DAYS 1 AND 2 SINCE CYCLE 1

REACTIONS (4)
  - Nausea [Unknown]
  - Vomiting [Unknown]
  - Weight decreased [Unknown]
  - Thrombocytopenia [Unknown]
